FAERS Safety Report 25083461 (Version 1)
Quarter: 2025Q1

REPORT INFORMATION
  Report Type: Spontaneous
  Country: CN (occurrence: CN)
  Receive Date: 20250317
  Receipt Date: 20250317
  Transmission Date: 20250409
  Serious: Yes (Other)
  Sender: ALEXION PHARMACEUTICALS
  Company Number: CN-ASTRAZENECA-202503CHN008295CN

PATIENT
  Age: 75 Year
  Weight: 71 kg

DRUGS (3)
  1. IMFINZI [Suspect]
     Active Substance: DURVALUMAB
     Indication: Lung neoplasm malignant
     Dosage: 1000 MILLIGRAM, QD
  2. ETOPOSIDE [Concomitant]
     Active Substance: ETOPOSIDE
     Route: 065
  3. CISPLATIN [Concomitant]
     Active Substance: CISPLATIN
     Route: 065

REACTIONS (3)
  - Interstitial lung disease [Recovering/Resolving]
  - Rash [Recovering/Resolving]
  - Mouth ulceration [Recovering/Resolving]
